FAERS Safety Report 4394324-4 (Version None)
Quarter: 2004Q3

REPORT INFORMATION
  Report Type: 
  Country: None (occurrence: None)
  Receive Date: 20040706
  Receipt Date: 20040618
  Transmission Date: 20050211
  Serious: Yes (Hospitalization)
  Sender: FDA-Public Use
  Company Number: US013300

PATIENT
  Age: 21 Year
  Sex: Female
  Weight: 40.8237 kg

DRUGS (1)
  1. GABITRIL [Suspect]
     Indication: SLEEP DISORDER
     Dosage: 32 MG ONCE ORAL
     Route: 048
     Dates: start: 20040606

REACTIONS (4)
  - ANXIETY [None]
  - DRUG SCREEN POSITIVE [None]
  - GRAND MAL CONVULSION [None]
  - INTENTIONAL MISUSE [None]
